FAERS Safety Report 20311491 (Version 5)
Quarter: 2023Q2

REPORT INFORMATION
  Report Type: Other
  Country: CA (occurrence: CA)
  Receive Date: 20220108
  Receipt Date: 20230425
  Transmission Date: 20230722
  Serious: Yes (Hospitalization)
  Sender: FDA-Public Use
  Company Number: CA-CELLTRION INC.-2021CA018026

PATIENT

DRUGS (28)
  1. RITUXIMAB [Suspect]
     Active Substance: RITUXIMAB
     Indication: Vasculitis
     Dosage: 1000 MG, 1 EVERY 15 DAYS
     Route: 042
  2. RITUXIMAB [Suspect]
     Active Substance: RITUXIMAB
     Indication: Interstitial lung disease
     Dosage: 500 MILLIGRAM
     Route: 042
  3. RITUXIMAB [Suspect]
     Active Substance: RITUXIMAB
     Indication: Granulomatosis with polyangiitis
  4. AMLODIPINE [Concomitant]
     Active Substance: AMLODIPINE BESYLATE
     Route: 065
  5. ARANESP [Concomitant]
     Active Substance: DARBEPOETIN ALFA
  6. BENADRYL [Concomitant]
     Active Substance: DIPHENHYDRAMINE HYDROCHLORIDE
     Indication: Premedication
     Dosage: 50 G
     Route: 048
  7. CINACALCET [Concomitant]
     Active Substance: CINACALCET
  8. DOLUTEGRAVIR SODIUM [Concomitant]
     Active Substance: DOLUTEGRAVIR SODIUM
  9. EDURANT [Concomitant]
     Active Substance: RILPIVIRINE HYDROCHLORIDE
  10. ELIQUIS [Concomitant]
     Active Substance: APIXABAN
  11. EMLA [Concomitant]
     Active Substance: LIDOCAINE\PRILOCAINE
     Route: 065
  12. FUROSEMIDE [Concomitant]
     Active Substance: FUROSEMIDE
     Route: 065
  13. IRON [Concomitant]
     Active Substance: IRON
     Route: 065
  14. JANUVIA [Concomitant]
     Active Substance: SITAGLIPTIN PHOSPHATE
     Route: 048
  15. LACTULOSE [Concomitant]
     Active Substance: LACTULOSE
  16. LANTUS [Concomitant]
     Active Substance: INSULIN GLARGINE
  17. MEPRON [Concomitant]
     Active Substance: ATOVAQUONE
  18. METOPROLOL [Concomitant]
     Active Substance: METOPROLOL
  19. NOVORAPID [Concomitant]
     Active Substance: INSULIN ASPART
  20. PERINDOPRIL [Concomitant]
     Active Substance: PERINDOPRIL
  21. PREDNISONE [Concomitant]
     Active Substance: PREDNISONE
  22. RANITIDINE [Concomitant]
     Active Substance: RANITIDINE
  23. ROSUVASTATIN [Concomitant]
     Active Substance: ROSUVASTATIN
     Route: 058
  24. ALBUTEROL [Concomitant]
     Active Substance: ALBUTEROL
  25. SENOKOT [Concomitant]
     Active Substance: SENNOSIDES
  26. SOLU-MEDROL [Concomitant]
     Active Substance: METHYLPREDNISOLONE SODIUM SUCCINATE
     Indication: Premedication
     Dosage: 100 MG
     Route: 042
  27. SIMVASTATIN [Concomitant]
     Active Substance: SIMVASTATIN
  28. TYLENOL [Concomitant]
     Active Substance: ACETAMINOPHEN
     Indication: Premedication
     Dosage: 650 MG
     Route: 048

REACTIONS (5)
  - Arthropathy [Not Recovered/Not Resolved]
  - Ill-defined disorder [Not Recovered/Not Resolved]
  - Infected skin ulcer [Not Recovered/Not Resolved]
  - Off label use [Unknown]
  - Off label use [Unknown]
